FAERS Safety Report 13467011 (Version 1)
Quarter: 2017Q2

REPORT INFORMATION
  Report Type: Spontaneous
  Country: CN (occurrence: CN)
  Receive Date: 20170421
  Receipt Date: 20170421
  Transmission Date: 20170830
  Serious: Yes (Other)
  Sender: FDA-Public Use
  Company Number: CN-ABBVIE-17P-035-1949749-00

PATIENT
  Age: 56 Year
  Sex: Male

DRUGS (1)
  1. SODIUM VALPROATE [Suspect]
     Active Substance: VALPROATE SODIUM
     Indication: TIC
     Route: 048

REACTIONS (11)
  - Electroencephalogram abnormal [Unknown]
  - Indifference [Unknown]
  - Unresponsive to stimuli [Unknown]
  - Somnolence [Unknown]
  - Ammonia increased [Unknown]
  - Altered state of consciousness [Unknown]
  - Hyperammonaemic encephalopathy [Unknown]
  - Incoherent [Unknown]
  - Trance [Unknown]
  - Cognitive disorder [Unknown]
  - Feeding disorder [Unknown]
